FAERS Safety Report 4615918-4 (Version None)
Quarter: 2005Q1

REPORT INFORMATION
  Report Type: 
  Country: None (occurrence: None)
  Receive Date: 20050318
  Receipt Date: 20050314
  Transmission Date: 20050727
  Serious: Yes (Hospitalization)
  Sender: FDA-Public Use
  Company Number: ZONI002130

PATIENT
  Age: 72 Year
  Sex: Female

DRUGS (2)
  1. EXCEGRAN            (ZONISAMIDE) [Suspect]
     Indication: CONVULSION PROPHYLAXIS
     Dosage: 200 MG, 1 IN 1 D, ORAL
     Route: 048
     Dates: start: 20050210, end: 20050309
  2. NORVASC [Concomitant]

REACTIONS (3)
  - PYREXIA [None]
  - TOXIC SKIN ERUPTION [None]
  - UPPER RESPIRATORY TRACT INFLAMMATION [None]
